FAERS Safety Report 5644956-8 (Version None)
Quarter: 2008Q1

REPORT INFORMATION
  Report Type: 
  Country: None (occurrence: None)
  Receive Date: 20080229
  Receipt Date: 20071121
  Transmission Date: 20080703
  Serious: No
  Sender: FDA-Public Use
  Company Number: A0695628A

PATIENT
  Age: 61 Year
  Sex: Male

DRUGS (4)
  1. VALTREX [Suspect]
     Dosage: 1G PER DAY
     Route: 048
     Dates: start: 20071114
  2. TOPICAL STEROIDS [Concomitant]
  3. ANTIBIOTICS [Concomitant]
     Route: 061
  4. FACE WASH (UNSPECIFIED) [Concomitant]

REACTIONS (2)
  - DRUG INEFFECTIVE [None]
  - SKIN ULCER [None]
